FAERS Safety Report 11607863 (Version 4)
Quarter: 2016Q1

REPORT INFORMATION
  Report Type: Report from Study
  Country: US (occurrence: US)
  Receive Date: 20151007
  Receipt Date: 20160223
  Transmission Date: 20160525
  Serious: Yes (Other)
  Sender: FDA-Public Use
  Company Number: US-AMGEN-USASP2015067496

PATIENT
  Age: 65 Year
  Sex: Female
  Weight: 46 kg

DRUGS (3)
  1. ESTRING [Concomitant]
     Active Substance: ESTRADIOL
     Dosage: UNK UNK, Q2MO
     Route: 067
     Dates: start: 2011
  2. PROLIA [Suspect]
     Active Substance: DENOSUMAB
     Indication: OSTEOPOROSIS
     Dosage: UNK, Q6MO
     Route: 065
     Dates: start: 201502
  3. ALPRAZOLAM. [Concomitant]
     Active Substance: ALPRAZOLAM
     Dosage: 0.25 MG, AT BEDTIME
     Route: 048

REACTIONS (8)
  - Rash generalised [Not Recovered/Not Resolved]
  - Dry skin [Not Recovered/Not Resolved]
  - Pruritus [Not Recovered/Not Resolved]
  - Suicidal ideation [Unknown]
  - Eczema [Not Recovered/Not Resolved]
  - Depression [Unknown]
  - Skin haemorrhage [Not Recovered/Not Resolved]
  - Skin sensitisation [Not Recovered/Not Resolved]
